FAERS Safety Report 5749991-7 (Version None)
Quarter: 2008Q2

REPORT INFORMATION
  Report Type: 
  Country: None (occurrence: None)
  Receive Date: 20080527
  Receipt Date: 20080514
  Transmission Date: 20081010
  Serious: Yes (Hospitalization)
  Sender: FDA-Public Use
  Company Number: US-ROCHE-556754

PATIENT
  Sex: Female

DRUGS (14)
  1. XELODA [Suspect]
     Indication: BREAST CANCER
     Route: 048
     Dates: start: 20071023, end: 20080205
  2. DASATINIB [Suspect]
     Indication: BREAST CANCER
     Route: 048
     Dates: start: 20071023, end: 20080205
  3. ADVAIR DISKUS 100/50 [Concomitant]
     Dates: start: 20030101
  4. ADVAIR DISKUS 100/50 [Concomitant]
     Dates: start: 20030101
  5. ZYRTEC [Concomitant]
     Dates: start: 20060101
  6. COMBIVENT [Concomitant]
     Dates: start: 20020101
  7. COMBIVENT [Concomitant]
     Dates: start: 20020101
  8. DULOXETINE HYDROCHLORIDE [Concomitant]
     Dates: start: 20061212
  9. DUONEB [Concomitant]
     Dates: start: 20080101
  10. DUONEB [Concomitant]
     Dates: start: 20080101
  11. PREVACID [Concomitant]
     Dates: start: 20070101
  12. MONTELUKAST SODIUM [Concomitant]
     Dates: start: 20000101
  13. OLANZAPINE [Concomitant]
     Dates: start: 20070501
  14. DILAUDID [Concomitant]
     Dates: start: 20070918

REACTIONS (4)
  - ASTHMA [None]
  - DYSPNOEA [None]
  - HYPOXIA [None]
  - UPPER RESPIRATORY TRACT INFECTION [None]
